FAERS Safety Report 15211238 (Version 1)
Quarter: 2018Q3

REPORT INFORMATION
  Report Type: Spontaneous
  Country: US (occurrence: US)
  Receive Date: 20180630
  Receipt Date: 20180630
  Transmission Date: 20181010
  Serious: Yes (Life-Threatening, Hospitalization)
  Sender: FDA-Public Use
  Company Number: None

PATIENT
  Age: 74 Year
  Sex: Male
  Weight: 249.48 kg

DRUGS (1)
  1. JARDIANCE [Suspect]
     Active Substance: EMPAGLIFLOZIN
     Indication: TYPE 2 DIABETES MELLITUS
     Route: 048
     Dates: start: 20180610, end: 20180617

REACTIONS (4)
  - Atrial fibrillation [None]
  - Toxicity to various agents [None]
  - Asthenia [None]
  - Blood potassium increased [None]

NARRATIVE: CASE EVENT DATE: 20180617
